FAERS Safety Report 19417893 (Version 1)
Quarter: 2021Q2

REPORT INFORMATION
  Report Type: Spontaneous
  Country: FR (occurrence: FR)
  Receive Date: 20210615
  Receipt Date: 20210615
  Transmission Date: 20210717
  Serious: Yes (Congenital Anomaly, Other)
  Sender: FDA-Public Use
  Company Number: FR-ABBVIE-21K-056-3944912-00

PATIENT
  Sex: Male

DRUGS (2)
  1. GARDENAL [Concomitant]
     Active Substance: PHENOBARBITAL
     Indication: PRODUCT USED FOR UNKNOWN INDICATION
  2. DEPAKINE CHRONO [Suspect]
     Active Substance: VALPROATE SODIUM
     Indication: MATERNAL EXPOSURE TIMING UNSPECIFIED
     Route: 064

REACTIONS (14)
  - Deafness [Unknown]
  - Autism spectrum disorder [Unknown]
  - Psychomotor skills impaired [Unknown]
  - Ear disorder [Unknown]
  - Visual impairment [Unknown]
  - Foetal exposure during pregnancy [Unknown]
  - Behaviour disorder [Unknown]
  - Nasal disorder [Unknown]
  - Speech disorder developmental [Unknown]
  - Impaired reasoning [Unknown]
  - Disturbance in attention [Unknown]
  - Oropharyngeal discomfort [Unknown]
  - Learning disability [Unknown]
  - Social avoidant behaviour [Unknown]
